FAERS Safety Report 26170078 (Version 1)
Quarter: 2025Q4

REPORT INFORMATION
  Report Type: Spontaneous
  Country: KR (occurrence: KR)
  Receive Date: 20251217
  Receipt Date: 20251217
  Transmission Date: 20260117
  Serious: Yes (Death)
  Sender: MALLINCKRODT
  Company Number: KR-MALLINCKRODT-MNK202508012

PATIENT
  Age: 4 Day
  Sex: Male
  Weight: 0.83 kg

DRUGS (2)
  1. NITRIC OXIDE [Suspect]
     Active Substance: NITRIC OXIDE
     Indication: Newborn persistent pulmonary hypertension
     Dosage: 20 PPM, 25PPM, 20PPM
     Route: 055
     Dates: start: 20251207, end: 20251208
  2. SURFACTANTS NOS [Concomitant]
     Indication: Respiratory failure
     Dosage: UNK
     Dates: start: 20251204, end: 20251207

REACTIONS (2)
  - Cardiac arrest [Fatal]
  - Newborn persistent pulmonary hypertension [Fatal]

NARRATIVE: CASE EVENT DATE: 20251208
